FAERS Safety Report 8144257-2 (Version None)
Quarter: 2012Q1

REPORT INFORMATION
  Report Type: 
  Country: None (occurrence: None)
  Receive Date: 20120217
  Receipt Date: 20120214
  Transmission Date: 20120608
  Serious: Yes (Life-Threatening)
  Sender: FDA-Public Use
  Company Number: US-BAYER-2011-079623

PATIENT
  Sex: Female

DRUGS (4)
  1. DROSPIRENONE AND ETHINYL ESTRADIOL [Suspect]
  2. YASMIN [Suspect]
  3. YAZ [Suspect]
  4. COUMADIN [Concomitant]
     Indication: DEEP VEIN THROMBOSIS
     Dosage: UNK
     Dates: start: 20090901, end: 20100201

REACTIONS (5)
  - ANXIETY [None]
  - ANHEDONIA [None]
  - INJURY [None]
  - PAIN [None]
  - DEEP VEIN THROMBOSIS [None]
